FAERS Safety Report 4398208-7 (Version None)
Quarter: 2004Q3

REPORT INFORMATION
  Report Type: 
  Country: None (occurrence: None)
  Receive Date: 20040713
  Receipt Date: 20040630
  Transmission Date: 20050211
  Serious: Yes (Death)
  Sender: FDA-Public Use
  Company Number: JP-JNJFOC-20040400847

PATIENT
  Age: 76 Year
  Sex: Male

DRUGS (6)
  1. DUROTEP (FENTANYL) [Suspect]
     Indication: CANCER PAIN
     Dosage: SEE IMAGE
     Route: 062
     Dates: start: 20040114, end: 20040117
  2. DUROTEP (FENTANYL) [Suspect]
     Indication: CANCER PAIN
     Dosage: SEE IMAGE
     Route: 062
     Dates: start: 20040117, end: 20040126
  3. DUROTEP (FENTANYL) [Suspect]
     Indication: CANCER PAIN
     Dosage: SEE IMAGE
     Route: 062
     Dates: start: 20040126, end: 20040305
  4. MORPHINE [Concomitant]
  5. DEXAMETHASONE SODIUN PHOSPHATE [Concomitant]
  6. DICLOFENAC SODIUM [Concomitant]

REACTIONS (2)
  - COLON CANCER [None]
  - MALIGNANT NEOPLASM PROGRESSION [None]
